FAERS Safety Report 6249532-4 (Version None)
Quarter: 2009Q2

REPORT INFORMATION
  Report Type: 
  Country: None (occurrence: None)
  Receive Date: 20090629
  Receipt Date: 20090309
  Transmission Date: 20091009
  Serious: No
  Sender: FDA-Public Use
  Company Number: A0772324A

PATIENT
  Age: 58 Year
  Sex: Male

DRUGS (7)
  1. ZYBAN [Suspect]
     Dosage: 150MG PER DAY
     Route: 048
  2. WARFARIN SODIUM [Concomitant]
  3. LIPITOR [Concomitant]
  4. LISINOPRIL [Concomitant]
  5. EFFEXOR [Concomitant]
  6. GLYBURIDE [Concomitant]
  7. GLIPIZIDE [Concomitant]

REACTIONS (1)
  - DRUG INEFFECTIVE [None]
